FAERS Safety Report 7157623-9 (Version None)
Quarter: 2010Q4

REPORT INFORMATION
  Report Type: 
  Country: None (occurrence: None)
  Receive Date: 20101214
  Receipt Date: 20100305
  Transmission Date: 20110411
  Serious: No
  Sender: FDA-Public Use
  Company Number: US-ASTRAZENECA-2010SE09750

PATIENT
  Sex: Female
  Weight: 90.3 kg

DRUGS (1)
  1. CRESTOR [Suspect]
     Route: 048
     Dates: start: 20100101, end: 20100201

REACTIONS (6)
  - AMNESIA [None]
  - ARTHRALGIA [None]
  - ASTHENIA [None]
  - DYSURIA [None]
  - FATIGUE [None]
  - MUSCULAR WEAKNESS [None]
